FAERS Safety Report 11202142 (Version 4)
Quarter: 2015Q4

REPORT INFORMATION
  Report Type: Report from Study
  Country: PT (occurrence: PT)
  Receive Date: 20150619
  Receipt Date: 20151214
  Transmission Date: 20160304
  Serious: Yes (Death, Hospitalization)
  Sender: FDA-Public Use
  Company Number: PT-CELGENE-PRT-2015036344

PATIENT
  Age: 64 Year
  Sex: Male

DRUGS (1)
  1. CC-5013 [Suspect]
     Active Substance: LENALIDOMIDE
     Indication: MYELODYSPLASTIC SYNDROME
     Dosage: 10 MILLIGRAM
     Route: 048
     Dates: start: 20101116, end: 20131120

REACTIONS (2)
  - Lung cancer metastatic [Fatal]
  - Haematemesis [Recovered/Resolved]

NARRATIVE: CASE EVENT DATE: 20150320
